FAERS Safety Report 6807472-3 (Version None)
Quarter: 2010Q2

REPORT INFORMATION
  Report Type: 
  Country: None (occurrence: None)
  Receive Date: 20100629
  Receipt Date: 20081029
  Transmission Date: 20101027
  Serious: No
  Sender: FDA-Public Use
  Company Number: US-PFIZER INC-2008079705

PATIENT
  Sex: Male
  Weight: 86.363 kg

DRUGS (3)
  1. VIAGRA [Suspect]
     Indication: ERECTILE DYSFUNCTION
     Dates: start: 20000101
  2. ATENOLOL [Suspect]
     Indication: HEART RATE INCREASED
     Dates: start: 19920101, end: 20000101
  3. ACETYLSALICYLIC ACID [Concomitant]

REACTIONS (3)
  - FLUSHING [None]
  - HEART RATE DECREASED [None]
  - NERVOUS SYSTEM DISORDER [None]
